FAERS Safety Report 9064033 (Version 1)
Quarter: 2013Q1

REPORT INFORMATION
  Report Type: Report from Study
  Country: US (occurrence: US)
  Receive Date: 20130130
  Receipt Date: 20130130
  Transmission Date: 20140127
  Serious: No
  Sender: FDA-Public Use
  Company Number: US-ABBOTT-12P-163-0954716-00

PATIENT
  Age: 70 Year
  Sex: Male
  Weight: 83.99 kg

DRUGS (8)
  1. HUMIRA 40 MG/0.8 ML PEN [Suspect]
     Indication: CROHN^S DISEASE
     Dosage: ONCE
     Dates: start: 201205, end: 201205
  2. HUMIRA 40 MG/0.8 ML PEN [Suspect]
     Dates: start: 201205, end: 201205
  3. HUMIRA 40 MG/0.8 ML PEN [Suspect]
     Dates: start: 201206
  4. HUMIRA 40 MG/ 0.8 ML PRE-FILLED SYRINGE [Suspect]
     Indication: PRODUCT USED FOR UNKNOWN INDICATION
  5. BUDESONIDE [Concomitant]
     Indication: PRODUCT USED FOR UNKNOWN INDICATION
     Dates: end: 20120622
  6. BENICAR [Concomitant]
     Indication: HYPERTENSION
  7. JANUVIA [Concomitant]
     Indication: BLOOD GLUCOSE INCREASED
     Dates: end: 20120622
  8. CRESTOR [Concomitant]
     Indication: BLOOD CHOLESTEROL INCREASED

REACTIONS (2)
  - Musculoskeletal stiffness [Not Recovered/Not Resolved]
  - Nodule [Not Recovered/Not Resolved]
